FAERS Safety Report 9997629 (Version 1)
Quarter: 2014Q1

REPORT INFORMATION
  Report Type: Spontaneous
  Country: US (occurrence: None)
  Receive Date: 20140225
  Receipt Date: 20140225
  Transmission Date: 20141002
  Serious: Yes (Hospitalization, Other)
  Sender: FDA-Public Use
  Company Number: 2013-345

PATIENT
  Age: 55 Year
  Sex: Female
  Weight: 59 kg

DRUGS (14)
  1. PRIALT (ZICONOTIDE) INTRATHECAL INFUSION [Suspect]
     Indication: BACK PAIN
     Route: 037
     Dates: start: 20130328, end: 20130718
  2. PRIALT (ZICONOTIDE) INTRATHECAL INFUSION [Suspect]
     Indication: POST LAMINECTOMY SYNDROME
     Route: 037
     Dates: start: 20130328, end: 20130718
  3. PRIALT (ZICONOTIDE) INTRATHECAL INFUSION [Suspect]
     Indication: SCIATICA
     Route: 037
     Dates: start: 20130328, end: 20130718
  4. PRIALT (ZICONOTIDE) INTRATHECAL INFUSION [Suspect]
     Indication: PERIPHERAL NERVE LESION
     Route: 037
     Dates: start: 20130328, end: 20130718
  5. PRIALT (ZICONOTIDE) INTRATHECAL INFUSION [Suspect]
     Indication: PIRIFORMIS SYNDROME
     Route: 037
     Dates: start: 20130328, end: 20130718
  6. PERCOCET (OXYCODONE HYDROCHLORIDE, PARACETAMOL) [Concomitant]
  7. NEURONTIN (GABAPENTIN) [Concomitant]
  8. VALIUM (DIAZEPAM) [Concomitant]
  9. CYMBALTA [Concomitant]
  10. PROZAC (FLUOXETINE HYDROCHLORIDE) [Concomitant]
  11. RESTORIL (TEMAZEPAM) [Concomitant]
  12. AMBIEN (ZOLPIDEM TARTRATE) [Concomitant]
  13. ESTRATEST (ESTROGENS ESTERIFIED, METHYLTESTOSTERONE) [Concomitant]
  14. CALCIUM (CALCIUM) [Concomitant]

REACTIONS (24)
  - Suicidal ideation [None]
  - Depression [None]
  - Mental status changes [None]
  - Urinary retention [None]
  - Hallucination [None]
  - Incontinence [None]
  - Anger [None]
  - Weight bearing difficulty [None]
  - Abdominal distension [None]
  - Back pain [None]
  - Depressed level of consciousness [None]
  - Somnolence [None]
  - Pain [None]
  - Oedema peripheral [None]
  - Drug withdrawal syndrome [None]
  - Confusional state [None]
  - Memory impairment [None]
  - Disturbance in attention [None]
  - Hypoaesthesia [None]
  - Paraesthesia [None]
  - Myalgia [None]
  - Burning sensation [None]
  - Gait disturbance [None]
  - Anxiety [None]
